FAERS Safety Report 6944622-2 (Version None)
Quarter: 2010Q3

REPORT INFORMATION
  Report Type: 
  Country: None (occurrence: None)
  Receive Date: 20100827
  Receipt Date: 20100818
  Transmission Date: 20110219
  Serious: Yes (Other)
  Sender: FDA-Public Use
  Company Number: GB-PFIZER INC-2010104364

PATIENT
  Age: 26 Year
  Sex: Female
  Weight: 95 kg

DRUGS (4)
  1. DEPO-PROVERA [Suspect]
     Indication: CONTRACEPTION
     Dosage: 150 MG, UNK
     Route: 030
     Dates: start: 20050930, end: 20100806
  2. AMOXICILLIN [Concomitant]
     Indication: LOWER RESPIRATORY TRACT INFECTION
     Dosage: 500 MG, 3X/DAY
     Route: 048
     Dates: start: 20100616, end: 20100621
  3. DIHYDROCODEINE [Concomitant]
     Indication: PAIN
     Dosage: 30 MG, 4X/DAY
     Route: 048
     Dates: start: 20100701
  4. LANSOPRAZOLE [Concomitant]
     Indication: DYSPEPSIA
     Dosage: 30 MG, UNK
     Route: 048
     Dates: start: 20100614

REACTIONS (5)
  - BACK PAIN [None]
  - CHEST PAIN [None]
  - FEELING HOT [None]
  - PANIC REACTION [None]
  - VOMITING [None]
